FAERS Safety Report 6972265-3 (Version None)
Quarter: 2010Q3

REPORT INFORMATION
  Report Type: 
  Country: None (occurrence: None)
  Receive Date: 20100909
  Receipt Date: 20100831
  Transmission Date: 20110219
  Serious: Yes (Hospitalization, Other)
  Sender: FDA-Public Use
  Company Number: IE-JNJFOC-20100802406

PATIENT
  Sex: Female

DRUGS (5)
  1. CONCERTA [Suspect]
     Indication: ATTENTION DEFICIT/HYPERACTIVITY DISORDER
     Route: 048
  2. CONCERTA [Suspect]
     Route: 048
  3. CONCERTA [Suspect]
     Route: 048
  4. FEXOFENADINE HCL [Interacting]
     Indication: SINUSITIS
     Route: 065
  5. FEXOFENADINE HCL [Interacting]
     Indication: LARYNGITIS
     Route: 065

REACTIONS (3)
  - DRUG INTERACTION [None]
  - MOVEMENT DISORDER [None]
  - SYNCOPE [None]
